FAERS Safety Report 10179374 (Version 1)
Quarter: 2014Q2

REPORT INFORMATION
  Report Type: Spontaneous
  Country: SG (occurrence: SG)
  Receive Date: 20140519
  Receipt Date: 20140519
  Transmission Date: 20141212
  Serious: Yes (Hospitalization)
  Sender: FDA-Public Use
  Company Number: SG-BAYER-2014-069748

PATIENT
  Sex: 0

DRUGS (1)
  1. ACETYLSALICYLIC ACID (} 100 MG) [Suspect]
     Dosage: UNK

REACTIONS (2)
  - Hypoaesthesia oral [Not Recovered/Not Resolved]
  - Eye swelling [Not Recovered/Not Resolved]
